FAERS Safety Report 5318651-9 (Version None)
Quarter: 2007Q2

REPORT INFORMATION
  Report Type: 
  Country: None (occurrence: None)
  Receive Date: 20070508
  Receipt Date: 20070430
  Transmission Date: 20071010
  Serious: Yes (Hospitalization, Other)
  Sender: FDA-Public Use
  Company Number: PHEH2007US06563

PATIENT
  Age: 45 Year
  Sex: Female

DRUGS (3)
  1. ZELNORM [Suspect]
     Indication: IRRITABLE BOWEL SYNDROME
     Dosage: 6 MG, BID
     Route: 048
     Dates: start: 20020101, end: 20070428
  2. KLONOPIN [Concomitant]
     Route: 048
     Dates: start: 20040101
  3. NEXIUM [Concomitant]
     Route: 048
     Dates: start: 20060101

REACTIONS (5)
  - CARDIAC FLUTTER [None]
  - CHEST DISCOMFORT [None]
  - DIZZINESS [None]
  - PALPITATIONS [None]
  - VENTRICULAR EXTRASYSTOLES [None]
